FAERS Safety Report 6923033-X (Version None)
Quarter: 2010Q3

REPORT INFORMATION
  Report Type: 
  Country: None (occurrence: None)
  Receive Date: 20100813
  Receipt Date: 20100804
  Transmission Date: 20110219
  Serious: Yes (Other)
  Sender: FDA-Public Use
  Company Number: US-ASTRAZENECA-2010SE36561

PATIENT
  Age: 56 Year
  Sex: Female

DRUGS (4)
  1. NEXIUM [Suspect]
     Indication: NAUSEA
     Route: 048
     Dates: start: 20100401, end: 20100401
  2. FISH OIL PILLS [Concomitant]
  3. MULTI VIT [Concomitant]
  4. ESTROGEN PATCH [Concomitant]

REACTIONS (8)
  - ABDOMINAL PAIN UPPER [None]
  - HYPOAESTHESIA [None]
  - PAIN [None]
  - PARAESTHESIA [None]
  - QUALITY OF LIFE DECREASED [None]
  - SUICIDAL IDEATION [None]
  - VOMITING [None]
  - WEIGHT INCREASED [None]
